FAERS Safety Report 9820560 (Version 1)
Quarter: 2014Q1

REPORT INFORMATION
  Report Type: Spontaneous
  Country: US (occurrence: US)
  Receive Date: 20140116
  Receipt Date: 20140116
  Transmission Date: 20141002
  Serious: Yes (Hospitalization)
  Sender: FDA-Public Use
  Company Number: US-SA-2014SA005616

PATIENT
  Age: 67 Year
  Sex: Female
  Weight: 73.02 kg

DRUGS (5)
  1. LASIX [Suspect]
     Route: 048
  2. FERROUS SULPHATE [Suspect]
     Route: 048
  3. TRAMADOL [Suspect]
     Route: 048
  4. PANTOPRAZOLE [Suspect]
     Route: 048
  5. BAYER CHILDREN^S ASPIRIN [Suspect]
     Route: 048
     Dates: end: 201312

REACTIONS (3)
  - Rectal haemorrhage [Unknown]
  - Gastric haemorrhage [Unknown]
  - Adverse event [Unknown]
